FAERS Safety Report 9322145 (Version 1)
Quarter: 2013Q2

REPORT INFORMATION
  Report Type: Spontaneous
  Country: US (occurrence: None)
  Receive Date: 20130530
  Receipt Date: 20130530
  Transmission Date: 20140414
  Serious: No
  Sender: FDA-Public Use
  Company Number: None

PATIENT
  Age: 61 Year
  Sex: Male
  Weight: 82.3 kg

DRUGS (1)
  1. DALFAMPRIDINE [Suspect]
     Indication: MULTIPLE SCLEROSIS
     Route: 048
     Dates: start: 20120525, end: 20120612

REACTIONS (3)
  - Gait disturbance [None]
  - Pain in extremity [None]
  - Pain in extremity [None]
